FAERS Safety Report 9242438 (Version 4)
Quarter: 2013Q2

REPORT INFORMATION
  Report Type: Spontaneous
  Country: DE (occurrence: DE)
  Receive Date: 20130419
  Receipt Date: 20130612
  Transmission Date: 20140414
  Serious: Yes (Other)
  Sender: FDA-Public Use
  Company Number: DE-JNJFOC-20130406896

PATIENT
  Age: 66 Year
  Sex: Female
  Weight: 68 kg

DRUGS (4)
  1. REGAINE FRAUEN [Suspect]
     Route: 061
  2. REGAINE FRAUEN [Suspect]
     Indication: ALOPECIA
     Route: 061
     Dates: start: 20130320, end: 20130324
  3. L-THYROXINE [Concomitant]
     Route: 048
     Dates: start: 2008
  4. RAMIPRIL [Concomitant]
     Dosage: 5 / 25 MG
     Route: 048
     Dates: start: 2003

REACTIONS (7)
  - Angina pectoris [Recovered/Resolved]
  - Dyspnoea [Recovered/Resolved]
  - Dysphagia [Recovered/Resolved]
  - Application site warmth [Recovered/Resolved]
  - Application site erythema [Recovered/Resolved]
  - Application site pain [Recovered/Resolved]
  - Ocular hyperaemia [Recovered/Resolved]
